FAERS Safety Report 6173922-1 (Version None)
Quarter: 2009Q2

REPORT INFORMATION
  Report Type: 
  Country: None (occurrence: None)
  Receive Date: 20090429
  Receipt Date: 20090429
  Transmission Date: 20091009
  Serious: No
  Sender: FDA-Public Use
  Company Number: None

PATIENT
  Age: 23 Year
  Sex: Female
  Weight: 55.7924 kg

DRUGS (4)
  1. SERTRALINE HCL [Suspect]
     Indication: ANXIETY
     Dosage: 1 SID PO
     Route: 048
     Dates: start: 20080501, end: 20090425
  2. SERTRALINE HCL [Suspect]
     Indication: DEPRESSION
     Dosage: 1 SID PO
     Route: 048
     Dates: start: 20080501, end: 20090425
  3. SERTRALINE HCL [Suspect]
     Indication: OBSESSIVE-COMPULSIVE DISORDER
     Dosage: 1 SID PO
     Route: 048
     Dates: start: 20080501, end: 20090425
  4. SERTRALINE HCL [Suspect]

REACTIONS (8)
  - ANXIETY [None]
  - CONFUSIONAL STATE [None]
  - DEPRESSION [None]
  - DIZZINESS [None]
  - FATIGUE [None]
  - INSOMNIA [None]
  - MUSCLE FATIGUE [None]
  - PRODUCT SUBSTITUTION ISSUE [None]
